FAERS Safety Report 25043548 (Version 1)
Quarter: 2025Q1

REPORT INFORMATION
  Report Type: Spontaneous
  Country: US (occurrence: US)
  Receive Date: 20250306
  Receipt Date: 20250306
  Transmission Date: 20250409
  Serious: Yes (Other)
  Sender: ENDO
  Company Number: US-ENDO USA, INC.-2025-000698

PATIENT
  Age: 6 Decade
  Sex: Female
  Weight: 63.492 kg

DRUGS (1)
  1. PREDNISONE [Suspect]
     Active Substance: PREDNISONE
     Indication: Product used for unknown indication
     Route: 065

REACTIONS (3)
  - Joint injury [Not Recovered/Not Resolved]
  - Hip surgery [Recovered/Resolved]
  - Intervertebral disc protrusion [Unknown]
